FAERS Safety Report 10023439 (Version 1)
Quarter: 2013Q4

REPORT INFORMATION
  Report Type: Spontaneous
  Country: GB (occurrence: None)
  Receive Date: 20131224
  Receipt Date: 20131224
  Transmission Date: 20140711
  Serious: Yes (Other)
  Sender: FDA-Public Use
  Company Number: AUR-APU-2013-07484

PATIENT
  Sex: Male

DRUGS (2)
  1. FINASTERIDE [Suspect]
     Indication: PROSTATIC DISORDER
  2. BISOPROLOL [Suspect]
     Indication: PRODUCT USED FOR UNKNOWN INDICATION

REACTIONS (3)
  - Penile haemorrhage [None]
  - Penile pain [None]
  - Micturition urgency [None]
